FAERS Safety Report 25258314 (Version 2)
Quarter: 2025Q3

REPORT INFORMATION
  Report Type: Report from Study
  Country: US (occurrence: US)
  Receive Date: 20250501
  Receipt Date: 20250703
  Transmission Date: 20251021
  Serious: Yes (Other)
  Sender: ROCHE
  Company Number: US-ROCHE-10000265741

PATIENT

DRUGS (3)
  1. ACTIVASE [Suspect]
     Active Substance: ALTEPLASE
     Indication: Ischaemic stroke
     Route: 065
  2. ACTIVASE [Suspect]
     Active Substance: ALTEPLASE
     Indication: Acute myocardial infarction
  3. ACTIVASE [Suspect]
     Active Substance: ALTEPLASE
     Indication: Pulmonary embolism

REACTIONS (2)
  - Needle issue [Unknown]
  - No adverse event [Unknown]
